FAERS Safety Report 22336709 (Version 2)
Quarter: 2023Q2

REPORT INFORMATION
  Report Type: Report from Study
  Country: BR (occurrence: BR)
  Receive Date: 20230518
  Receipt Date: 20230612
  Transmission Date: 20230721
  Serious: Yes (Other)
  Sender: FDA-Public Use
  Company Number: BR-ABBVIE-4742708

PATIENT
  Age: 52 Year
  Sex: Female

DRUGS (1)
  1. SKYRIZI [Suspect]
     Active Substance: RISANKIZUMAB-RZAA
     Indication: Psoriasis
     Route: 058
     Dates: start: 20210719

REACTIONS (11)
  - Gait inability [Unknown]
  - Skin disorder [Not Recovered/Not Resolved]
  - Arthropathy [Not Recovered/Not Resolved]
  - Skin lesion [Unknown]
  - Arthritis [Unknown]
  - Arthropathy [Unknown]
  - Loss of personal independence in daily activities [Unknown]
  - Quality of life decreased [Unknown]
  - Suicidal ideation [Unknown]
  - Arthralgia [Unknown]
  - Depressed mood [Unknown]

NARRATIVE: CASE EVENT DATE: 20230501
